FAERS Safety Report 15659556 (Version 2)
Quarter: 2018Q4

REPORT INFORMATION
  Report Type: Report from Study
  Country: US (occurrence: US)
  Receive Date: 20181127
  Receipt Date: 20181231
  Transmission Date: 20190205
  Serious: Yes (Other)
  Sender: FDA-Public Use
  Company Number: US-ASTELLAS-2018US006148

PATIENT
  Sex: Male

DRUGS (3)
  1. PROGRAF [Suspect]
     Active Substance: TACROLIMUS\TACROLIMUS ANHYDROUS
     Indication: GRAFT VERSUS HOST DISEASE
     Route: 048
     Dates: start: 20160701
  2. ISAVUCONAZOLE [Suspect]
     Active Substance: ISAVUCONAZOLE
     Indication: PULMONARY MASS
  3. ISAVUCONAZOLE [Suspect]
     Active Substance: ISAVUCONAZOLE
     Indication: FUNGAL INFECTION
     Route: 048
     Dates: start: 20160701

REACTIONS (3)
  - Leukaemia [Unknown]
  - Hypoacusis [Unknown]
  - Product use in unapproved indication [Unknown]
